FAERS Safety Report 9230264 (Version 1)
Quarter: 2013Q1

REPORT INFORMATION
  Report Type: Spontaneous
  Country: US (occurrence: None)
  Receive Date: 20121031
  Receipt Date: 20121031
  Transmission Date: 20140127
  Serious: No
  Sender: FDA-Public Use
  Company Number: PHEH2012US011353

PATIENT
  Age: 46 Year
  Sex: Female

DRUGS (5)
  1. GILENYA (FTY) CAPSULE, 0.5 MG [Suspect]
     Indication: MULTIPLE SCLEROSIS
     Route: 048
     Dates: start: 20111115
  2. FAMPRIDINE (FAMPRIDINE) [Concomitant]
  3. LYRICA (PREGAMBLIN) [Concomitant]
  4. TIZANIDINE (TIZANIDINE) [Concomitant]
  5. OXYBUTYNIN (OXYBUTYNIN) [Concomitant]

REACTIONS (2)
  - Facial pain [None]
  - Paraesthesia [None]
